FAERS Safety Report 6099831-4 (Version None)
Quarter: 2009Q1

REPORT INFORMATION
  Report Type: 
  Country: None (occurrence: None)
  Receive Date: 20090303
  Receipt Date: 20090223
  Transmission Date: 20090719
  Serious: Yes (Death, Other)
  Sender: FDA-Public Use
  Company Number: PHHY2008MX10862

PATIENT
  Age: 68 Year
  Sex: Male

DRUGS (1)
  1. DIOVAN [Suspect]
     Dosage: 1 TABLET (320 MG) PER DAY
     Dates: start: 20070101, end: 20080601

REACTIONS (6)
  - AZOTAEMIA [None]
  - LEG AMPUTATION [None]
  - PAIN IN EXTREMITY [None]
  - RENAL DISORDER [None]
  - RENAL IMPAIRMENT [None]
  - THROMBOSIS [None]
